FAERS Safety Report 6460491 (Version 9)
Quarter: 2013Q2

REPORT INFORMATION
  Report Type: Spontaneous
  Country: US (occurrence: US)
  Receive Date: 20071107
  Receipt Date: 20130429
  Transmission Date: 20140414
  Serious: Yes (Other)
  Sender: FDA-Public Use
  Company Number: PHEH2007US03628

PATIENT
  Age: 50 Year
  Sex: Female
  Weight: 89.8 kg

DRUGS (12)
  1. ESTRADERM [Suspect]
     Indication: MENOPAUSAL SYMPTOMS
     Route: 061
     Dates: start: 19970920, end: 199901
  2. PREMPRO [Suspect]
     Indication: MENOPAUSAL SYMPTOMS
     Dosage: 1 DF, QD
     Route: 048
     Dates: start: 199901, end: 200104
  3. ADRIAMYCIN [Concomitant]
     Dates: start: 2001
  4. CYTOXAN [Concomitant]
     Dates: start: 200105
  5. TAMOXIFEN [Concomitant]
     Dosage: 10 MG, BID
     Dates: start: 2001
  6. LOPRESSOR [Concomitant]
     Indication: HYPERTENSION
     Dates: start: 20020129, end: 2006
  7. PROZAC [Concomitant]
     Indication: DEPRESSION
     Dates: start: 20020129
  8. CELEXA [Concomitant]
     Indication: SOCIAL PHOBIA
  9. FEMARA [Concomitant]
     Dates: start: 200409
  10. VICODIN [Concomitant]
     Dates: start: 20031209
  11. VICODIN [Concomitant]
     Dates: start: 20031209
  12. MAXZIDE [Concomitant]
     Dates: start: 200105

REACTIONS (28)
  - Breast cancer [Unknown]
  - Metastatic neoplasm [Unknown]
  - Breast disorder [Unknown]
  - Depression [Unknown]
  - Lymphoedema [Unknown]
  - Hypertension [Unknown]
  - Cardiac valve disease [Unknown]
  - Cardiac disorder [Unknown]
  - Arrhythmia [Unknown]
  - Back pain [Unknown]
  - Neck pain [Unknown]
  - Fibrosis [Unknown]
  - Leukopenia [Unknown]
  - Palpitations [Unknown]
  - Fall [Unknown]
  - Joint injury [Unknown]
  - Face injury [Unknown]
  - Hot flush [Unknown]
  - Facial paresis [Unknown]
  - Cutis laxa [Unknown]
  - Pulmonary fibrosis [Unknown]
  - Diverticulum intestinal [Unknown]
  - Renal cyst [Unknown]
  - Dyspepsia [Unknown]
  - Abdominal pain [Unknown]
  - Abdominal distension [Unknown]
  - Breast mass [Unknown]
  - Breast cyst [Unknown]
